FAERS Safety Report 5897295-4 (Version None)
Quarter: 2008Q3

REPORT INFORMATION
  Report Type: 
  Country: None (occurrence: None)
  Receive Date: 20080924
  Receipt Date: 20080924
  Transmission Date: 20090109
  Serious: Yes (Life-Threatening, Other)
  Sender: FDA-Public Use
  Company Number: None

PATIENT
  Age: 48 Year
  Sex: Female
  Weight: 56.246 kg

DRUGS (3)
  1. PROAIR HFA [Suspect]
     Indication: DIZZINESS
     Dosage: 1 OR 2 INHALATIONS PER DAY INHAL
     Route: 055
     Dates: start: 20080920, end: 20080922
  2. PROAIR HFA [Suspect]
     Indication: HEADACHE
     Dosage: 1 OR 2 INHALATIONS PER DAY INHAL
     Route: 055
     Dates: start: 20080920, end: 20080922
  3. PROAIR HFA [Suspect]
     Indication: PHARYNGEAL DISORDER
     Dosage: 1 OR 2 INHALATIONS PER DAY INHAL
     Route: 055
     Dates: start: 20080920, end: 20080922

REACTIONS (7)
  - CONDITION AGGRAVATED [None]
  - DIZZINESS [None]
  - DRUG INEFFECTIVE [None]
  - DYSPNOEA [None]
  - HEADACHE [None]
  - OROPHARYNGEAL PAIN [None]
  - PHARMACEUTICAL PRODUCT COMPLAINT [None]
